FAERS Safety Report 8654745 (Version 10)
Quarter: 2012Q4

REPORT INFORMATION
  Report Type: 
  Country: BR (occurrence: BR)
  Receive Date: 20120709
  Receipt Date: 20121206
  Transmission Date: 20130627
  Serious: Yes (Hospitalization)
  Sender: FDA-Public Use
  Company Number: PHHY2012BR055977

PATIENT
  Sex: Female
  Weight: 80 kg

DRUGS (6)
  1. GILENYA [Suspect]
     Indication: MULTIPLE SCLEROSIS
     Dosage: 0.5 mg, QD
     Route: 048
     Dates: start: 20120614
  2. ESCITALOPRAM [Concomitant]
     Indication: DEPRESSION
     Dosage: 1 DF, QD
  3. ESCITALOPRAM [Concomitant]
     Indication: PAIN
  4. RIVOTRIL [Concomitant]
     Indication: INSOMNIA
     Dosage: 1 DF, QD
  5. LYRICA [Concomitant]
     Indication: ARTHRALGIA
     Dosage: 2 DF, daily
  6. TRAMAL [Concomitant]
     Indication: ARTHRALGIA
     Dosage: 10 drp, Q6H

REACTIONS (15)
  - Gastritis erosive [Recovered/Resolved]
  - Abdominal pain upper [Recovered/Resolved]
  - Arthralgia [Recovered/Resolved]
  - Condition aggravated [Recovering/Resolving]
  - Pain [Recovered/Resolved]
  - Asthenia [Unknown]
  - Headache [Recovered/Resolved]
  - Anxiety [Recovering/Resolving]
  - Neuralgia [Recovering/Resolving]
  - Fatigue [Recovering/Resolving]
  - Vocal cord inflammation [Recovering/Resolving]
  - Aphonia [Recovering/Resolving]
  - Influenza [Recovering/Resolving]
  - Oropharyngeal pain [Recovering/Resolving]
  - Overdose [Unknown]
